FAERS Safety Report 7075394-1 (Version None)
Quarter: 2010Q4

REPORT INFORMATION
  Report Type: 
  Country: None (occurrence: None)
  Receive Date: 20101030
  Receipt Date: 20100909
  Transmission Date: 20110411
  Serious: No
  Sender: FDA-Public Use
  Company Number: US-WYE-H16891510

PATIENT
  Age: 81 Year
  Sex: Male
  Weight: 104.42 kg

DRUGS (6)
  1. ADVIL PM [Suspect]
     Indication: INSOMNIA
     Dosage: 1 CAPLET QHS
     Route: 048
     Dates: start: 20100801, end: 20100801
  2. NEURONTIN [Concomitant]
  3. GLYBURIDE [Concomitant]
  4. JANUVIA [Concomitant]
  5. LIPITOR [Concomitant]
  6. METOPROLOL SUCCINATE [Concomitant]

REACTIONS (1)
  - DRUG INEFFECTIVE [None]
